FAERS Safety Report 22299431 (Version 1)
Quarter: 2023Q2

REPORT INFORMATION
  Report Type: Spontaneous
  Country: US (occurrence: None)
  Receive Date: 20230508
  Receipt Date: 20230508
  Transmission Date: 20230722
  Serious: Yes (Hospitalization)
  Sender: FDA-Public Use
  Company Number: None

PATIENT
  Age: 40 Year
  Sex: Female
  Weight: 63 kg

DRUGS (1)
  1. METHYLCOBALAMIN\SEMAGLUTIDE [Suspect]
     Active Substance: METHYLCOBALAMIN\SEMAGLUTIDE
     Indication: Weight decreased
     Dosage: OTHER QUANTITY : .25 ML;?FREQUENCY : WEEKLY;?
     Route: 058
     Dates: start: 20230424, end: 20230424

REACTIONS (7)
  - Weight decreased [None]
  - Hypophagia [None]
  - Malaise [None]
  - Drug hypersensitivity [None]
  - Vomiting [None]
  - Product formulation issue [None]
  - Intentional product misuse [None]

NARRATIVE: CASE EVENT DATE: 20230424
